FAERS Safety Report 6222609-5 (Version None)
Quarter: 2009Q2

REPORT INFORMATION
  Report Type: 
  Country: None (occurrence: None)
  Receive Date: 20090611
  Receipt Date: 20090608
  Transmission Date: 20091009
  Serious: Yes (Other)
  Sender: FDA-Public Use
  Company Number: US-B.I. PHARMACEUTICALS,INC./RIDGEFIELD-2009-BP-06996BP

PATIENT
  Sex: Female

DRUGS (7)
  1. SPIRIVA [Suspect]
     Indication: BRONCHITIS
     Dosage: 18MCG
     Route: 055
     Dates: start: 20090606, end: 20090608
  2. BENAZEPRIL HYDROCHLORIDE [Concomitant]
     Indication: HYPERTENSION
     Route: 048
  3. LEVOTHYROXINE [Concomitant]
     Indication: HYPOTHYROIDISM
  4. PROAIR HFA [Concomitant]
     Indication: BRONCHITIS
     Route: 055
  5. PROAIR HFA [Concomitant]
     Indication: ASTHMA
  6. ERYTHROMYCIN [Concomitant]
     Indication: BRONCHITIS
     Route: 048
  7. PREDNISONE [Concomitant]
     Indication: BRONCHITIS
     Route: 048

REACTIONS (2)
  - CHEST PAIN [None]
  - DYSPNOEA [None]
